FAERS Safety Report 4501357-3 (Version None)
Quarter: 2004Q3

REPORT INFORMATION
  Report Type: 
  Country: None (occurrence: None)
  Receive Date: 20040928
  Receipt Date: 20040712
  Transmission Date: 20050211
  Serious: No
  Sender: FDA-Public Use
  Company Number: 04P-163-0267102-00

PATIENT
  Age: 57 Year
  Sex: Female
  Weight: 58.0604 kg

DRUGS (7)
  1. HUMIRA [Suspect]
     Indication: RHEUMATOID ARTHRITIS
     Dosage: 40 MG, 1 IN 2 WK, SUBCUTANEOUS
     Route: 058
     Dates: start: 20040526
  2. CELECOXIB [Concomitant]
  3. METHOTREXATE [Concomitant]
  4. LEVOTHYROXINE SODIUM [Concomitant]
  5. LANSOPRAZOLE [Concomitant]
  6. RISEDRONATE SODIUM [Concomitant]
  7. FOLIC ACID [Concomitant]

REACTIONS (4)
  - HERPES SIMPLEX [None]
  - INJECTION SITE BURNING [None]
  - INJECTION SITE PAIN [None]
  - INJECTION SITE SWELLING [None]
